FAERS Safety Report 13067553 (Version 2)
Quarter: 2016Q4

REPORT INFORMATION
  Report Type: Spontaneous
  Country: IN (occurrence: IN)
  Receive Date: 20161228
  Receipt Date: 20161228
  Transmission Date: 20170207
  Serious: Yes (Other)
  Sender: FDA-Public Use
  Company Number: IN-AUROBINDO-AUR-APL-2014-03909

PATIENT

DRUGS (4)
  1. INTERFERON [Suspect]
     Active Substance: INTERFERON
     Indication: ANTIVIRAL TREATMENT
     Dosage: UNK UNK,UNK,
     Route: 065
  2. DOCETAXEL. [Suspect]
     Active Substance: DOCETAXEL
     Indication: CHEMOTHERAPY
     Dosage: UNK UNK,UNK,
     Route: 065
  3. TRASTUZUMAB [Suspect]
     Active Substance: TRASTUZUMAB
     Indication: CHEMOTHERAPY
     Dosage: UNK UNK,UNK,
     Route: 065
  4. HERIB 200 TABLETS (RIBAVIRIN) [Suspect]
     Active Substance: RIBAVIRIN
     Indication: ANTIVIRAL TREATMENT
     Dosage: UNK UNK,UNK,
     Route: 065

REACTIONS (2)
  - Neutropenia [Unknown]
  - Hepatotoxicity [Unknown]
